FAERS Safety Report 20222745 (Version 1)
Quarter: 2021Q4

REPORT INFORMATION
  Report Type: Spontaneous
  Country: IT (occurrence: IT)
  Receive Date: 20211223
  Receipt Date: 20211223
  Transmission Date: 20220303
  Serious: Yes (Hospitalization)
  Sender: FDA-Public Use
  Company Number: None

PATIENT
  Age: 48 Year
  Sex: Female
  Weight: 65 kg

DRUGS (3)
  1. TAVOR (LORAZEPAM) [Suspect]
     Active Substance: LORAZEPAM
     Indication: Intentional overdose
     Dosage: 7 MG, TOTAL
     Route: 048
     Dates: start: 20211120, end: 20211120
  2. XANAX [Suspect]
     Active Substance: ALPRAZOLAM
     Indication: Intentional overdose
     Dosage: 30 DROP, TOTAL
     Route: 048
     Dates: start: 20211120, end: 20211120
  3. ZOLPIDEM [Suspect]
     Active Substance: ZOLPIDEM TARTRATE
     Indication: Intentional overdose
     Dosage: 20 MG, TOTAL
     Route: 048
     Dates: start: 20211120, end: 20211120

REACTIONS (3)
  - Intentional overdose [Not Recovered/Not Resolved]
  - Fatigue [Not Recovered/Not Resolved]
  - Drug abuse [Not Recovered/Not Resolved]

NARRATIVE: CASE EVENT DATE: 20211120
